FAERS Safety Report 20855336 (Version 1)
Quarter: 2022Q2

REPORT INFORMATION
  Report Type: Spontaneous
  Country: US (occurrence: None)
  Receive Date: 20220519
  Receipt Date: 20220519
  Transmission Date: 20220721
  Serious: Yes (Disabling)
  Sender: FDA-Public Use
  Company Number: None

PATIENT
  Age: 47 Year
  Sex: Female
  Weight: 108 kg

DRUGS (7)
  1. METHYLPHENIDATE HYDROCHLORIDE [Suspect]
     Active Substance: METHYLPHENIDATE HYDROCHLORIDE
     Indication: Attention deficit hyperactivity disorder
     Dosage: OTHER QUANTITY : 1 TABLET(S);?
     Route: 048
     Dates: start: 20220201, end: 20220519
  2. DEVICE [Concomitant]
     Active Substance: DEVICE
  3. ATENOLOL [Concomitant]
     Active Substance: ATENOLOL
  4. ESTRADIOL [Concomitant]
     Active Substance: ESTRADIOL
  5. glycinate [Concomitant]
  6. d3 1000iu daily [Concomitant]
  7. DESVENLAFAXINE [Concomitant]
     Active Substance: DESVENLAFAXINE

REACTIONS (5)
  - Heart rate increased [None]
  - Blood pressure increased [None]
  - Photophobia [None]
  - Product substitution issue [None]
  - Anxiety [None]

NARRATIVE: CASE EVENT DATE: 20220330
